FAERS Safety Report 4650309-1 (Version None)
Quarter: 2005Q2

REPORT INFORMATION
  Report Type: 
  Country: None (occurrence: None)
  Receive Date: 20050428
  Receipt Date: 20050413
  Transmission Date: 20051028
  Serious: Yes (Hospitalization)
  Sender: FDA-Public Use
  Company Number: F01200403852

PATIENT
  Age: 53 Year
  Sex: Female
  Weight: 37.3 kg

DRUGS (10)
  1. OXALIPLATIN - SOLUTION - 130 MG/M2 [Suspect]
     Indication: NON-SMALL CELL LUNG CANCER
     Dosage: ......MG/M2 Q3W - INTRAVENOUS NOS
     Route: 042
     Dates: start: 20041115, end: 20041115
  2. GEMCITABINE - SOLUTION  - 1000 MG/M2 [Suspect]
     Dosage: 1000 MG/M2 Q3W - INTRAVENOUS NOS
     Route: 042
     Dates: start: 20041122, end: 20041122
  3. PREDNISONE TAB [Concomitant]
  4. OMEPRAZOLE [Concomitant]
  5. FUROSEMIDE [Concomitant]
  6. FLUCONAZOLE [Concomitant]
  7. OXYCODONE HCL/PARACETAMOL [Concomitant]
  8. MORPHINE SULFATE [Concomitant]
  9. LANSOPRAZOLE [Concomitant]
  10. HEPARIN [Concomitant]

REACTIONS (15)
  - ASTHENIA [None]
  - BALANCE DISORDER [None]
  - BLUE TOE SYNDROME [None]
  - DRUG TOXICITY [None]
  - HYPOAESTHESIA [None]
  - HYPONATRAEMIA [None]
  - MALIGNANT NEOPLASM PROGRESSION [None]
  - NON-SMALL CELL LUNG CANCER [None]
  - OEDEMA PERIPHERAL [None]
  - PARAESTHESIA [None]
  - PERFORMANCE STATUS DECREASED [None]
  - PERIPHERAL COLDNESS [None]
  - RAYNAUD'S PHENOMENON [None]
  - SKIN DISCOLOURATION [None]
  - WEIGHT DECREASED [None]
